FAERS Safety Report 17433463 (Version 1)
Quarter: 2020Q1

REPORT INFORMATION
  Report Type: Report from Study
  Country: ES (occurrence: ES)
  Receive Date: 20200219
  Receipt Date: 20200219
  Transmission Date: 20200409
  Serious: Yes (Hospitalization)
  Sender: FDA-Public Use
  Company Number: ES-ROCHE-2552027

PATIENT
  Age: 40 Year
  Sex: Female

DRUGS (6)
  1. CLOZAPINA [Concomitant]
     Active Substance: CLOZAPINE
     Route: 048
     Dates: start: 20191001, end: 20191010
  2. CLONAZEPAM. [Suspect]
     Active Substance: CLONAZEPAM
     Indication: SUICIDE ATTEMPT
     Route: 048
     Dates: start: 20191001, end: 20191001
  3. CLOMIPRAMINA [CLOMIPRAMINE] [Interacting]
     Active Substance: CLOMIPRAMINE
     Indication: SUICIDE ATTEMPT
     Route: 048
     Dates: start: 20191001, end: 20191001
  4. PLENUR [LITHIUM CARBONATE] [Interacting]
     Active Substance: LITHIUM CARBONATE
     Indication: SUICIDE ATTEMPT
     Route: 048
     Dates: start: 20191001, end: 20191001
  5. PLENUR [LITHIUM CARBONATE] [Interacting]
     Active Substance: LITHIUM CARBONATE
     Route: 048
     Dates: start: 201301, end: 20190930
  6. CLOZAPINA [Concomitant]
     Active Substance: CLOZAPINE
     Indication: SUICIDE ATTEMPT
     Route: 048
     Dates: start: 201510, end: 20190930

REACTIONS (2)
  - Depressed level of consciousness [Recovered/Resolved]
  - Antipsychotic drug level increased [Recovered/Resolved]

NARRATIVE: CASE EVENT DATE: 20191001
